FAERS Safety Report 23417978 (Version 1)
Quarter: 2024Q1

REPORT INFORMATION
  Report Type: Spontaneous
  Country: US (occurrence: None)
  Receive Date: 20240118
  Receipt Date: 20240118
  Transmission Date: 20240409
  Serious: Yes (Hospitalization)
  Sender: FDA-Public Use
  Company Number: None

PATIENT
  Age: 44 Year
  Sex: Female
  Weight: 69.85 kg

DRUGS (9)
  1. CYCLOPHOSPHAMIDE [Suspect]
     Active Substance: CYCLOPHOSPHAMIDE
     Dates: end: 20231202
  2. CYTARABINE [Suspect]
     Active Substance: CYTARABINE
     Dates: end: 20231229
  3. SPRYCEL [Suspect]
     Active Substance: DASATINIB
     Dates: end: 20240112
  4. DEXAMETHASONE [Suspect]
     Active Substance: DEXAMETHASONE
     Dates: end: 20231213
  5. DOXORUBICIN HYDROCHLORIDE [Suspect]
     Active Substance: DOXORUBICIN HYDROCHLORIDE
     Dates: end: 20231203
  6. MESNA [Suspect]
     Active Substance: MESNA
     Dates: end: 20231202
  7. METHOTREXATE [Suspect]
     Active Substance: METHOTREXATE
     Dates: end: 20231229
  8. PREDNISONE [Suspect]
     Active Substance: PREDNISONE
     Dates: end: 20230822
  9. VINCRISTINE SULFATE [Suspect]
     Active Substance: VINCRISTINE SULFATE
     Dates: end: 20231208

REACTIONS (3)
  - Fatigue [None]
  - Anaemia [None]
  - Haemorrhoidal haemorrhage [None]

NARRATIVE: CASE EVENT DATE: 20240112
